FAERS Safety Report 7528978-8 (Version None)
Quarter: 2011Q2

REPORT INFORMATION
  Report Type: 
  Country: None (occurrence: None)
  Receive Date: 20110607
  Receipt Date: 20110525
  Transmission Date: 20111010
  Serious: Yes (Hospitalization)
  Sender: FDA-Public Use
  Company Number: PHHY2011US46096

PATIENT
  Sex: Male

DRUGS (3)
  1. MYFORTIC [Suspect]
     Dosage: 720 MG, BID
     Dates: start: 20100901, end: 20110301
  2. PROGRAF [Concomitant]
     Dosage: UNK
  3. PREDNISOLONE [Concomitant]
     Dosage: UNK

REACTIONS (1)
  - KIDNEY TRANSPLANT REJECTION [None]
